FAERS Safety Report 6753542-8 (Version None)
Quarter: 2010Q2

REPORT INFORMATION
  Report Type: 
  Country: None (occurrence: None)
  Receive Date: 20100603
  Receipt Date: 20100526
  Transmission Date: 20101027
  Serious: Yes (Other)
  Sender: FDA-Public Use
  Company Number: BR-SANOFI-AVENTIS-2010SA030383

PATIENT
  Age: 46 Year
  Sex: Female
  Weight: 108 kg

DRUGS (12)
  1. LANTUS [Suspect]
     Indication: TYPE 2 DIABETES MELLITUS
     Route: 058
     Dates: start: 20050101
  2. LANTUS [Suspect]
     Route: 058
     Dates: start: 20050101
  3. OPTIPEN [Suspect]
     Dates: start: 20050101
  4. ENALAPRIL MALEATE [Concomitant]
     Indication: BLOOD PRESSURE
     Route: 048
  5. ATENOLOL [Concomitant]
     Route: 048
  6. DIGESAN [Concomitant]
     Route: 048
  7. SUCRALFATE [Concomitant]
     Route: 048
  8. CARMELLOSE SODIUM [Concomitant]
  9. PARIET [Concomitant]
     Indication: GASTRIC DISORDER
     Route: 048
  10. LORAZEPAM [Concomitant]
     Route: 048
  11. QUADRIDERM [Concomitant]
  12. HUMALOG [Concomitant]
     Indication: TYPE 2 DIABETES MELLITUS
     Route: 058

REACTIONS (4)
  - BLOOD PRESSURE ABNORMAL [None]
  - FALL [None]
  - INSULIN RESISTANCE [None]
  - PATELLA FRACTURE [None]
